FAERS Safety Report 7808894-4 (Version None)
Quarter: 2011Q4

REPORT INFORMATION
  Report Type: 
  Country: None (occurrence: None)
  Receive Date: 20111012
  Receipt Date: 20111012
  Transmission Date: 20120403
  Serious: Yes (Hospitalization)
  Sender: FDA-Public Use
  Company Number: PHHO2007US21079

PATIENT
  Sex: Female
  Weight: 59.6 kg

DRUGS (1)
  1. GILENYA [Suspect]
     Indication: MULTIPLE SCLEROSIS
     Dosage: 1.25 MG, UNK
     Route: 048
     Dates: start: 20071219, end: 20071219

REACTIONS (5)
  - DYSPNOEA [None]
  - ATRIOVENTRICULAR BLOCK SECOND DEGREE [None]
  - HYPOTENSION [None]
  - HEART RATE DECREASED [None]
  - SINUS BRADYCARDIA [None]
